FAERS Safety Report 5145929-4 (Version None)
Quarter: 2006Q4

REPORT INFORMATION
  Report Type: 
  Country: None (occurrence: None)
  Receive Date: 20061108
  Receipt Date: 20061101
  Transmission Date: 20070319
  Serious: Yes (Other)
  Sender: FDA-Public Use
  Company Number: 2006UW21189

PATIENT
  Age: 53 Year
  Sex: Male

DRUGS (3)
  1. LOSEC [Suspect]
     Route: 048
  2. DOMPERIDONE [Concomitant]
  3. PYRIDOXINE HCL [Concomitant]

REACTIONS (2)
  - FLUSHING [None]
  - HYPOAESTHESIA [None]
